FAERS Safety Report 16465057 (Version 1)
Quarter: 2019Q2

REPORT INFORMATION
  Report Type: Spontaneous
  Country: GB (occurrence: GB)
  Receive Date: 20190621
  Receipt Date: 20190621
  Transmission Date: 20190711
  Serious: Yes (Other)
  Sender: FDA-Public Use
  Company Number: GB-MYLANLABS-2019M1057886

PATIENT
  Age: 81 Year
  Sex: Male
  Weight: 75 kg

DRUGS (8)
  1. ACETYLSALICYLIC ACID [Concomitant]
     Active Substance: ASPIRIN
     Dosage: 1 DOSAGE FORM, QD
     Dates: start: 20180914
  2. TAMSULOSIN HYDROCHLORIDE. [Concomitant]
     Active Substance: TAMSULOSIN HYDROCHLORIDE
     Dosage: EACH MORNING.
     Dates: start: 20180914
  3. LOSARTAN. [Concomitant]
     Active Substance: LOSARTAN
     Dosage: 1 DOSAGE FORM, QD
     Dates: start: 20180914
  4. HYDROCORTISONE. [Concomitant]
     Active Substance: HYDROCORTISONE
     Dosage: 1 DOSAGE FORM, QD
     Dates: start: 20181205, end: 20181206
  5. SOLIFENACIN [Concomitant]
     Active Substance: SOLIFENACIN
     Dosage: EACH NIGHT.
     Dates: start: 20180914
  6. DIPROBASE                          /01210201/ [Concomitant]
     Dosage: UNK UNK, PRN
     Dates: start: 20181205, end: 20181206
  7. ATORVASTATIN [Suspect]
     Active Substance: ATORVASTATIN
     Indication: PRODUCT USED FOR UNKNOWN INDICATION
     Dates: start: 20180914
  8. PRAVASTATIN. [Concomitant]
     Active Substance: PRAVASTATIN
     Dosage: AT NIGHT.
     Dates: start: 20181205

REACTIONS (1)
  - Eczema [Recovered/Resolved]
